FAERS Safety Report 15879699 (Version 1)
Quarter: 2019Q1

REPORT INFORMATION
  Report Type: Spontaneous
  Country: US (occurrence: US)
  Receive Date: 20190104
  Receipt Date: 20190104
  Transmission Date: 20190417
  Serious: No
  Sender: FDA-Public Use
  Company Number: None

PATIENT
  Age: 36 Year
  Sex: Female

DRUGS (1)
  1. SUBOXONE [Suspect]
     Active Substance: BUPRENORPHINE HYDROCHLORIDE\NALOXONE HYDROCHLORIDE
     Indication: DRUG ABUSE
     Dosage: 8-2MG TWO FILS ONCE DAILY SUBLINGUAL
     Route: 060
     Dates: start: 20181212, end: 20190102

REACTIONS (2)
  - Nausea [None]
  - Mucosal inflammation [None]

NARRATIVE: CASE EVENT DATE: 20190102
